FAERS Safety Report 10785702 (Version 1)
Quarter: 2015Q1

REPORT INFORMATION
  Report Type: Report from Study
  Country: UY (occurrence: UY)
  Receive Date: 20150211
  Receipt Date: 20150211
  Transmission Date: 20150721
  Serious: Yes (Hospitalization)
  Sender: FDA-Public Use
  Company Number: UY-ABBVIE-14P-168-1197088-00

PATIENT
  Age: 60 Year
  Sex: Female
  Weight: 54 kg

DRUGS (5)
  1. HUMIRA [Suspect]
     Active Substance: ADALIMUMAB
     Indication: RHEUMATOID ARTHRITIS
     Route: 058
     Dates: start: 20130501, end: 20140219
  2. VITAMIN D3 [Concomitant]
     Active Substance: CHOLECALCIFEROL
     Indication: OSTEOPOROSIS
     Dosage: ONCE A DAY IN THE MORNING
     Route: 048
  3. METHOTREXATE [Concomitant]
     Active Substance: METHOTREXATE
     Indication: PRODUCT USED FOR UNKNOWN INDICATION
     Dosage: EVERY FRIDAY
  4. FOLIC ACID. [Concomitant]
     Active Substance: FOLIC ACID
     Indication: PRODUCT USED FOR UNKNOWN INDICATION
  5. HUMIRA [Suspect]
     Active Substance: ADALIMUMAB
     Route: 058
     Dates: start: 20140312, end: 20141107

REACTIONS (12)
  - Anaemia [Recovering/Resolving]
  - Rhinitis [Recovered/Resolved]
  - Cartilage injury [Not Recovered/Not Resolved]
  - Therapeutic response unexpected [Unknown]
  - Knee deformity [Recovered/Resolved]
  - Herpes zoster [Recovering/Resolving]
  - Medication error [Unknown]
  - Musculoskeletal discomfort [Recovered/Resolved]
  - Arthralgia [Recovered/Resolved]
  - Melanocytic naevus [Recovering/Resolving]
  - Back pain [Not Recovered/Not Resolved]
  - Hypersensitivity [Recovered/Resolved]

NARRATIVE: CASE EVENT DATE: 201401
